FAERS Safety Report 8825012 (Version 2)
Quarter: 2015Q3

REPORT INFORMATION
  Report Type: Report from Study
  Country: US (occurrence: US)
  Receive Date: 20121004
  Receipt Date: 20150702
  Transmission Date: 20151125
  Serious: Yes (Death, Other)
  Sender: FDA-Public Use
  Company Number: US-ROCHE-1131643

PATIENT
  Sex: Male

DRUGS (16)
  1. DIFLUCAN [Concomitant]
     Active Substance: FLUCONAZOLE
     Route: 065
  2. FLUDARABINE [Concomitant]
     Active Substance: FLUDARABINE PHOSPHATE
  3. CYTOXAN [Concomitant]
     Active Substance: CYCLOPHOSPHAMIDE
     Route: 065
  4. NEULASTA [Concomitant]
     Active Substance: PEGFILGRASTIM
     Route: 065
  5. METHOTREXATE [Concomitant]
     Active Substance: METHOTREXATE
  6. COLACE [Concomitant]
     Active Substance: DOCUSATE SODIUM
  7. ARANESP [Concomitant]
     Active Substance: DARBEPOETIN ALFA
  8. DECADRON [Concomitant]
     Active Substance: DEXAMETHASONE
     Route: 042
  9. ANZEMET [Concomitant]
     Active Substance: DOLASETRON MESYLATE
     Route: 065
  10. BENADRYL [Concomitant]
     Active Substance: DIPHENHYDRAMINE HYDROCHLORIDE
  11. TOBRADEX [Concomitant]
     Active Substance: DEXAMETHASONE\TOBRAMYCIN
  12. TYLENOL [Concomitant]
     Active Substance: ACETAMINOPHEN
  13. RITUXAN [Suspect]
     Active Substance: RITUXIMAB
     Indication: CHRONIC LYMPHOCYTIC LEUKAEMIA
     Route: 065
     Dates: start: 20030203
  14. VINCRISTINE [Concomitant]
     Active Substance: VINCRISTINE
     Route: 065
  15. NOVANTRONE [Concomitant]
     Active Substance: MITOXANTRONE HYDROCHLORIDE
  16. PREDNISONE. [Concomitant]
     Active Substance: PREDNISONE
     Route: 048

REACTIONS (30)
  - Cough [Unknown]
  - Urinary hesitation [Unknown]
  - Fatigue [Unknown]
  - Respiratory tract infection [Unknown]
  - Decreased appetite [Unknown]
  - Thrombocytopenia [Unknown]
  - Death [Fatal]
  - Asthenia [Unknown]
  - Night sweats [Unknown]
  - Rhinorrhoea [Unknown]
  - Malnutrition [Unknown]
  - Abdominal pain [Unknown]
  - Epistaxis [Unknown]
  - Dyspnoea [Unknown]
  - Pyrexia [Unknown]
  - General physical health deterioration [Unknown]
  - Constipation [Unknown]
  - Alopecia [Unknown]
  - Wound infection [Unknown]
  - Disease progression [Unknown]
  - Pancytopenia [Unknown]
  - Malaise [Unknown]
  - Cytopenia [Unknown]
  - Bone pain [Unknown]
  - Platelet count decreased [Unknown]
  - Oral fungal infection [Recovered/Resolved]
  - Lymphadenopathy [Unknown]
  - Anaemia [Unknown]
  - Erythema [Unknown]
  - Off label use [Unknown]
